FAERS Safety Report 8523638-9 (Version None)
Quarter: 2012Q3

REPORT INFORMATION
  Report Type: 
  Country: None (occurrence: None)
  Receive Date: 20120720
  Receipt Date: 20120706
  Transmission Date: 20120928
  Serious: Yes (Hospitalization)
  Sender: FDA-Public Use
  Company Number: KR-BAYER-2012-067847

PATIENT
  Age: 52 Year
  Sex: Male
  Weight: 56 kg

DRUGS (4)
  1. BEECOM HEXA [Concomitant]
     Indication: VITAMIN SUPPLEMENTATION
     Dosage: 1 DF, QD
     Route: 048
     Dates: start: 20090721
  2. SORAFENIB (RAF KINASE INHIBITOR) [Suspect]
     Dosage: 400 MG, QD
     Route: 048
     Dates: start: 20120403
  3. SORAFENIB (RAF KINASE INHIBITOR) [Suspect]
     Indication: HEPATIC NEOPLASM MALIGNANT
     Dosage: 400 MG, QD
     Route: 048
     Dates: start: 20120110, end: 20120402
  4. ENTECAVIR [Concomitant]
     Indication: ANTIVIRAL TREATMENT
     Dosage: DAILY DOSE: 0.5 MG
     Route: 048
     Dates: start: 20090721

REACTIONS (1)
  - HEPATIC LESION [None]
